FAERS Safety Report 5140423-9 (Version None)
Quarter: 2006Q4

REPORT INFORMATION
  Report Type: 
  Country: None (occurrence: None)
  Receive Date: 20061031
  Receipt Date: 20061023
  Transmission Date: 20070319
  Serious: Yes (Hospitalization)
  Sender: FDA-Public Use
  Company Number: US-BRISTOL-MYERS SQUIBB COMPANY-13553136

PATIENT
  Age: 45 Year
  Sex: Male
  Weight: 54 kg

DRUGS (4)
  1. CETUXIMAB [Suspect]
     Indication: OESOPHAGEAL SQUAMOUS CELL CARCINOMA
     Dates: start: 20061016, end: 20061016
  2. CISPLATIN [Suspect]
     Indication: OESOPHAGEAL SQUAMOUS CELL CARCINOMA
     Dates: start: 20061016
  3. IRINOTECAN HCL [Suspect]
     Indication: OESOPHAGEAL SQUAMOUS CELL CARCINOMA
     Dates: start: 20061016
  4. ROXANOL [Concomitant]

REACTIONS (1)
  - HYPOKALAEMIA [None]
